FAERS Safety Report 7018338-0 (Version None)
Quarter: 2010Q3

REPORT INFORMATION
  Report Type: 
  Country: None (occurrence: None)
  Receive Date: 20100928
  Receipt Date: 20100921
  Transmission Date: 20110219
  Serious: Yes (Hospitalization, Other)
  Sender: FDA-Public Use
  Company Number: GB-ABBOTT-09P-167-0595138-00

PATIENT
  Sex: Male
  Weight: 125 kg

DRUGS (14)
  1. HUMIRA [Suspect]
     Indication: RHEUMATOID ARTHRITIS
     Route: 058
     Dates: start: 20070119, end: 20070808
  2. PREDNISOLONE [Concomitant]
     Indication: PRODUCT USED FOR UNKNOWN INDICATION
     Dosage: BASELINE 15-AUG-2007
  3. ALENDRONATE SODIUM [Concomitant]
     Indication: PRODUCT USED FOR UNKNOWN INDICATION
     Dosage: BASELINE 15-AUG-2007
  4. ASPIRIN [Concomitant]
     Indication: PRODUCT USED FOR UNKNOWN INDICATION
     Dosage: BASELINE 15-AUG-2007
  5. ATENOLOL [Concomitant]
     Indication: PRODUCT USED FOR UNKNOWN INDICATION
     Dosage: BASELINE 15-AUG-2007
  6. BENDROFLUAZIDE [Concomitant]
     Indication: PRODUCT USED FOR UNKNOWN INDICATION
     Dosage: BASELINE 15-AUG-2007
  7. CALCICHEW [Concomitant]
     Indication: PRODUCT USED FOR UNKNOWN INDICATION
     Dosage: BASELINE 15-AUG-2007
  8. ACETAMINOPHEN AND CODEINE PHOSPHATE [Concomitant]
     Indication: PRODUCT USED FOR UNKNOWN INDICATION
     Dosage: BASELINE 15-AUG-2007
  9. D-PENICILLAMINE [Concomitant]
     Indication: PRODUCT USED FOR UNKNOWN INDICATION
     Dosage: BASELINE 15-AUG-2007
  10. GLICLAZIDE [Concomitant]
     Indication: PRODUCT USED FOR UNKNOWN INDICATION
     Dosage: BASELINE 15-AUG-2007
  11. INDOMETHACIN [Concomitant]
     Indication: PRODUCT USED FOR UNKNOWN INDICATION
     Dosage: BASELINE 15-AUG-2007
  12. LOSARTAN [Concomitant]
     Indication: PRODUCT USED FOR UNKNOWN INDICATION
     Dosage: BASELINE 15-AUG-2007
  13. METFORMIN [Concomitant]
     Indication: PRODUCT USED FOR UNKNOWN INDICATION
     Dosage: BASELINE 15-AUG-2007
  14. SIMVASTATIN [Concomitant]
     Indication: PRODUCT USED FOR UNKNOWN INDICATION
     Dosage: BASELINE 15-AUG-2007

REACTIONS (4)
  - ARTHRALGIA [None]
  - BACK PAIN [None]
  - HEPATIC CANCER METASTATIC [None]
  - RENAL NEOPLASM [None]
